FAERS Safety Report 15332422 (Version 2)
Quarter: 2018Q3

REPORT INFORMATION
  Report Type: Spontaneous
  Country: US (occurrence: US)
  Receive Date: 20180829
  Receipt Date: 20180918
  Transmission Date: 20181010
  Serious: No
  Sender: FDA-Public Use
  Company Number: US-GLAXOSMITHKLINE-US2018GSK150654

PATIENT
  Sex: Female

DRUGS (1)
  1. TRELEGY ELLIPTA [Suspect]
     Active Substance: FLUTICASONE FUROATE\UMECLIDINIUM BROMIDE\VILANTEROL TRIFENATATE
     Indication: CHRONIC OBSTRUCTIVE PULMONARY DISEASE
     Dosage: 100/62.5/25 UG, UNK
     Route: 055
     Dates: start: 201806

REACTIONS (6)
  - Tongue ulceration [Unknown]
  - Candida infection [Recovering/Resolving]
  - Fungal infection [Unknown]
  - Adverse drug reaction [Recovering/Resolving]
  - Mouth ulceration [Unknown]
  - Blister [Recovering/Resolving]
